FAERS Safety Report 6207211-3 (Version None)
Quarter: 2009Q2

REPORT INFORMATION
  Report Type: 
  Country: None (occurrence: None)
  Receive Date: 20090528
  Receipt Date: 20090520
  Transmission Date: 20091009
  Serious: Yes (Hospitalization)
  Sender: FDA-Public Use
  Company Number: PHHY2009AU19504

PATIENT

DRUGS (1)
  1. ACLASTA [Suspect]

REACTIONS (1)
  - HYPOCALCAEMIA [None]
